FAERS Safety Report 19003137 (Version 1)
Quarter: 2021Q1

REPORT INFORMATION
  Report Type: Spontaneous
  Country: US (occurrence: US)
  Receive Date: 20210312
  Receipt Date: 20210312
  Transmission Date: 20210420
  Serious: Yes (Life-Threatening, Hospitalization, Other)
  Sender: FDA-Public Use
  Company Number: US-JNJFOC-20191016594

PATIENT
  Age: 32 Year
  Sex: Male

DRUGS (1)
  1. IMODIUM [Suspect]
     Active Substance: LOPERAMIDE HYDROCHLORIDE
     Indication: DRUG WITHDRAWAL SYNDROME
     Dosage: IN TOTAL
     Route: 065

REACTIONS (12)
  - Rhabdomyolysis [Unknown]
  - Respiratory depression [Not Recovered/Not Resolved]
  - Electrocardiogram QRS complex prolonged [Recovering/Resolving]
  - Gastrointestinal sounds abnormal [Unknown]
  - Compartment syndrome [Unknown]
  - Product use in unapproved indication [Unknown]
  - Bundle branch block left [Unknown]
  - Off label use [Unknown]
  - Electrocardiogram QT prolonged [Recovering/Resolving]
  - Toxicity to various agents [Unknown]
  - Acute kidney injury [Not Recovered/Not Resolved]
  - Intentional overdose [Unknown]
